FAERS Safety Report 4592567-8 (Version None)
Quarter: 2005Q1

REPORT INFORMATION
  Report Type: 
  Country: None (occurrence: None)
  Receive Date: 20050228
  Receipt Date: 20050215
  Transmission Date: 20050727
  Serious: Yes (Hospitalization)
  Sender: FDA-Public Use
  Company Number: 200511416GDDC

PATIENT
  Age: 63 Year
  Sex: Male

DRUGS (5)
  1. TRITACE [Suspect]
  2. DILTIAZEM HYDROCHLORIDE [Suspect]
  3. LASIX [Suspect]
  4. ATENOLOL [Suspect]
  5. PRAZOSIN HCL [Suspect]

REACTIONS (3)
  - BRADYCARDIA [None]
  - HYPOTENSION [None]
  - SHOCK [None]
